FAERS Safety Report 18160674 (Version 1)
Quarter: 2020Q3

REPORT INFORMATION
  Report Type: Spontaneous
  Country: US (occurrence: US)
  Receive Date: 20200818
  Receipt Date: 20200818
  Transmission Date: 20201103
  Serious: No
  Sender: FDA-Public Use
  Company Number: US-GLAXOSMITHKLINE-US2020AMR160048

PATIENT

DRUGS (1)
  1. BENLYSTA [Suspect]
     Active Substance: BELIMUMAB
     Indication: PRODUCT USED FOR UNKNOWN INDICATION
     Dosage: UNK

REACTIONS (8)
  - Nausea [Unknown]
  - Gait disturbance [Unknown]
  - Fatigue [Unknown]
  - Skin disorder [Unknown]
  - Dizziness [Unknown]
  - Ill-defined disorder [Unknown]
  - Headache [Unknown]
  - Malaise [Unknown]
